FAERS Safety Report 9414289 (Version 1)
Quarter: 2013Q3

REPORT INFORMATION
  Report Type: Spontaneous
  Country: CA (occurrence: None)
  Receive Date: 20130717
  Receipt Date: 20130717
  Transmission Date: 20140515
  Serious: Yes (Other)
  Sender: FDA-Public Use
  Company Number: ACO_37357_2013

PATIENT
  Age: 51 Year
  Sex: Female

DRUGS (1)
  1. FAMPYRA (DALFAMPRIDINE) TABLET, 10MG [Suspect]
     Indication: GAIT DISTURBANCE
     Route: 048
     Dates: start: 20130628, end: 20130629

REACTIONS (5)
  - Hallucination [None]
  - Anxiety [None]
  - Dizziness [None]
  - Balance disorder [None]
  - Gait disturbance [None]
